FAERS Safety Report 18295204 (Version 3)
Quarter: 2020Q4

REPORT INFORMATION
  Report Type: Spontaneous
  Country: US (occurrence: US)
  Receive Date: 20200922
  Receipt Date: 20201204
  Transmission Date: 20210113
  Serious: Yes (Hospitalization)
  Sender: FDA-Public Use
  Company Number: US-GLOBAL BLOOD THERAPEUTICS INC-US-GBT-20-02390

PATIENT
  Age: 48 Year
  Sex: Female

DRUGS (4)
  1. OXYGEN. [Concomitant]
     Active Substance: OXYGEN
     Indication: PRODUCT USED FOR UNKNOWN INDICATION
  2. OXBRYTA [Suspect]
     Active Substance: VOXELOTOR
     Indication: SICKLE CELL DISEASE
     Route: 048
     Dates: start: 20200527, end: 20201027
  3. OPSUMIT [Concomitant]
     Active Substance: MACITENTAN
     Indication: PRODUCT USED FOR UNKNOWN INDICATION
  4. OXBRYTA [Suspect]
     Active Substance: VOXELOTOR
     Route: 048
     Dates: start: 20201031

REACTIONS (4)
  - Pneumonia [Unknown]
  - Sickle cell anaemia with crisis [Recovered/Resolved]
  - Product dose omission issue [Unknown]
  - Sickle cell anaemia with crisis [Unknown]

NARRATIVE: CASE EVENT DATE: 202008
